FAERS Safety Report 22056787 (Version 2)
Quarter: 2025Q3

REPORT INFORMATION
  Report Type: Spontaneous
  Country: US (occurrence: US)
  Receive Date: 20230303
  Receipt Date: 20250709
  Transmission Date: 20251021
  Serious: Yes (Other)
  Sender: AUROBINDO
  Company Number: US-AUROBINDO-AUR-APL-2023-008994

PATIENT
  Age: 52 Year
  Sex: Male

DRUGS (3)
  1. AZITHROMYCIN [Suspect]
     Active Substance: AZITHROMYCIN
     Indication: Pneumonia legionella
     Route: 065
  2. CEFTRIAXONE [Suspect]
     Active Substance: CEFTRIAXONE
     Indication: Pneumonia legionella
     Route: 065
  3. EPOPROSTENOL [Concomitant]
     Active Substance: EPOPROSTENOL
     Indication: Hypoxia
     Route: 065

REACTIONS (1)
  - Drug ineffective [Unknown]
